FAERS Safety Report 5489016-4 (Version None)
Quarter: 2007Q4

REPORT INFORMATION
  Report Type: 
  Country: None (occurrence: None)
  Receive Date: 20071017
  Receipt Date: 20071008
  Transmission Date: 20080405
  Serious: Yes (Death)
  Sender: FDA-Public Use
  Company Number: FR-ABBOTT-07P-056-0419852-00

PATIENT
  Age: 41 Year
  Sex: Male

DRUGS (2)
  1. VALPROATE SODIUM TABLET PR [Suspect]
     Indication: EPILEPSY
     Route: 048
  2. ERGENYL CHRONO [Concomitant]
     Indication: EPILEPSY
     Route: 048

REACTIONS (3)
  - CEREBROVASCULAR ACCIDENT [None]
  - EPILEPSY [None]
  - THERAPEUTIC RESPONSE UNEXPECTED WITH DRUG SUBSTITUTION [None]
